FAERS Safety Report 10877977 (Version 1)
Quarter: 2015Q1

REPORT INFORMATION
  Report Type: Report from Study
  Country: US (occurrence: US)
  Receive Date: 20150302
  Receipt Date: 20150302
  Transmission Date: 20150721
  Serious: No
  Sender: FDA-Public Use
  Company Number: US-ABBVIE-14P-163-1285387-00

PATIENT
  Sex: Male
  Weight: 90.8 kg

DRUGS (5)
  1. ALLEGRA [Concomitant]
     Active Substance: FEXOFENADINE HYDROCHLORIDE
     Indication: HYPERSENSITIVITY
  2. VITAMIN D [Concomitant]
     Active Substance: CHOLECALCIFEROL
     Indication: PRODUCT USED FOR UNKNOWN INDICATION
  3. ANDROGEL [Suspect]
     Active Substance: TESTOSTERONE
     Indication: BLOOD TESTOSTERONE ABNORMAL
     Dosage: 4 PUMPS DAILY
     Route: 061
     Dates: start: 2007, end: 2008
  4. ANDROGEL [Suspect]
     Active Substance: TESTOSTERONE
     Indication: PROSTATECTOMY
     Dosage: 6 PUMPS DAILY
     Route: 061
     Dates: start: 2008
  5. NASONEX [Concomitant]
     Active Substance: MOMETASONE FUROATE
     Indication: HYPERSENSITIVITY

REACTIONS (8)
  - Fatigue [Not Recovered/Not Resolved]
  - Low density lipoprotein increased [Recovering/Resolving]
  - Blood cholesterol increased [Recovering/Resolving]
  - Drug administered at inappropriate site [Not Recovered/Not Resolved]
  - Weight increased [Not Recovered/Not Resolved]
  - Blood testosterone abnormal [Recovered/Resolved]
  - Glycosylated haemoglobin increased [Not Recovered/Not Resolved]
  - Blood triglycerides increased [Recovering/Resolving]

NARRATIVE: CASE EVENT DATE: 2007
